FAERS Safety Report 14257910 (Version 1)
Quarter: 2017Q4

REPORT INFORMATION
  Report Type: Spontaneous
  Country: US (occurrence: US)
  Receive Date: 20171207
  Receipt Date: 20171207
  Transmission Date: 20180321
  Serious: No
  Sender: FDA-Public Use
  Company Number: US-009507513-1712USA001391

PATIENT
  Sex: Female

DRUGS (2)
  1. KEYTRUDA [Suspect]
     Active Substance: PEMBROLIZUMAB
     Indication: MALIGNANT MELANOMA
     Dosage: EVERY 3 WEEKS
     Route: 042
     Dates: start: 201707, end: 2017
  2. HYDROXYZINE [Concomitant]
     Active Substance: HYDROXYZINE HYDROCHLORIDE
     Dosage: UNK

REACTIONS (5)
  - Pruritus [Unknown]
  - Memory impairment [Unknown]
  - Alopecia [Unknown]
  - Rash [Unknown]
  - Weight decreased [Unknown]

NARRATIVE: CASE EVENT DATE: 2017
